FAERS Safety Report 9980238 (Version 1)
Quarter: 2014Q1

REPORT INFORMATION
  Report Type: Spontaneous
  Country: US (occurrence: None)
  Receive Date: 20140305
  Receipt Date: 20140305
  Transmission Date: 20141002
  Serious: Yes (Life-Threatening)
  Sender: FDA-Public Use
  Company Number: None

PATIENT
  Age: 69 Year
  Sex: Male
  Weight: 99.4 kg

DRUGS (17)
  1. PROLEUKIN [Suspect]
     Indication: RENAL CELL CARCINOMA
     Dosage: 53,000,000 UNITS TID INTRAVANEOUS
     Route: 042
     Dates: start: 20140224, end: 20140228
  2. TYLENOL [Concomitant]
  3. CIPRO [Concomitant]
  4. DOPAMINE [Concomitant]
  5. MAGNESIUM [Concomitant]
  6. LASIX [Concomitant]
  7. NEURONTIN [Concomitant]
  8. HYDROCORTISONE [Concomitant]
  9. CLARITIN [Concomitant]
  10. LORAZEPAM [Concomitant]
  11. MEPERIDINE [Concomitant]
  12. TOPROL [Concomitant]
  13. NAPROXEN [Concomitant]
  14. ZOFRAN [Concomitant]
  15. PROTONIX [Concomitant]
  16. SALINE [Concomitant]
  17. HEPARIN [Concomitant]

REACTIONS (11)
  - Hypotension [None]
  - Respiratory distress [None]
  - Pleural effusion [None]
  - Renal failure acute [None]
  - Thrombocytopenia [None]
  - Adrenal insufficiency [None]
  - Delirium [None]
  - Supraventricular tachycardia [None]
  - Bundle branch block left [None]
  - Atrial fibrillation [None]
  - Toxicity to various agents [None]
